FAERS Safety Report 22083603 (Version 1)
Quarter: 2023Q1

REPORT INFORMATION
  Report Type: Spontaneous
  Country: AT (occurrence: AT)
  Receive Date: 20230310
  Receipt Date: 20230310
  Transmission Date: 20230417
  Serious: Yes (Death, Other)
  Sender: FDA-Public Use
  Company Number: AT-AMGEN-AUTSP2023039628

PATIENT

DRUGS (2)
  1. FILGRASTIM [Suspect]
     Active Substance: FILGRASTIM
     Indication: Prophylaxis
     Dosage: 7.5 MICROGRAM, BID
     Route: 058
  2. PEGFILGRASTIM [Suspect]
     Active Substance: PEGFILGRASTIM
     Indication: Prophylaxis
     Dosage: 6 MILLIGRAM
     Route: 058

REACTIONS (15)
  - Death [Fatal]
  - Plasma cell myeloma [Unknown]
  - Diffuse large B-cell lymphoma [Unknown]
  - Mantle cell lymphoma [Unknown]
  - Follicular lymphoma [Unknown]
  - Hodgkin^s disease [Unknown]
  - Burkitt^s lymphoma [Unknown]
  - Angioimmunoblastic T-cell lymphoma [Unknown]
  - Peripheral T-cell lymphoma unspecified [Unknown]
  - Central nervous system lymphoma [Unknown]
  - Non-Hodgkin^s lymphoma [Unknown]
  - Malignant melanoma [Unknown]
  - Myeloproliferative neoplasm [Unknown]
  - Acute myeloid leukaemia [Unknown]
  - Therapy partial responder [Unknown]
